FAERS Safety Report 9605983 (Version 1)
Quarter: 2013Q4

REPORT INFORMATION
  Report Type: Spontaneous
  Country: US (occurrence: US)
  Receive Date: 20131008
  Receipt Date: 20131008
  Transmission Date: 20140711
  Serious: No
  Sender: FDA-Public Use
  Company Number: US-AMGEN-USASP2013038037

PATIENT
  Age: 68 Year
  Sex: Female

DRUGS (6)
  1. PROLIA [Suspect]
     Indication: OSTEOPOROSIS
     Dosage: UNK
     Dates: start: 201106
  2. CHOLESTEROL [Concomitant]
  3. BABY ASPIRIN [Concomitant]
  4. CALCIUM [Concomitant]
  5. OMEGA 3                            /01334101/ [Concomitant]
  6. ANTIHYPERTENSIVES [Concomitant]

REACTIONS (10)
  - Groin pain [Unknown]
  - Pain [Unknown]
  - Alopecia [Unknown]
  - Skin exfoliation [Unknown]
  - Mobility decreased [Unknown]
  - Bone scan abnormal [Unknown]
  - Insomnia [Unknown]
  - Arthralgia [Unknown]
  - Rash [Unknown]
  - Pain in extremity [Unknown]
